FAERS Safety Report 4298896-X (Version None)
Quarter: 2004Q1

REPORT INFORMATION
  Report Type: 
  Country: None (occurrence: None)
  Receive Date: 20040126
  Receipt Date: 20031020
  Transmission Date: 20041129
  Serious: No
  Sender: FDA-Public Use
  Company Number: USA031050311

PATIENT
  Age: 14 Year
  Sex: Male
  Weight: 58 kg

DRUGS (2)
  1. STRATTERA [Suspect]
     Indication: ATTENTION DEFICIT/HYPERACTIVITY DISORDER
     Dosage: 60 MG/IN THE MORNING
     Dates: start: 20030601
  2. ASPIRIN [Concomitant]

REACTIONS (4)
  - COUGH [None]
  - FATIGUE [None]
  - HERPES SIMPLEX [None]
  - WEIGHT INCREASED [None]
